FAERS Safety Report 8722307 (Version 2)
Quarter: 2013Q4

REPORT INFORMATION
  Report Type: Spontaneous
  Country: US (occurrence: US)
  Receive Date: 20120814
  Receipt Date: 20131031
  Transmission Date: 20140711
  Serious: Yes (Hospitalization, Other)
  Sender: FDA-Public Use
  Company Number: US-009507513-1208USA004084

PATIENT
  Age: 58 Year
  Sex: Male

DRUGS (3)
  1. HEXADROL TABLETS [Suspect]
     Indication: SPLENOMEGALY
     Dosage: 4 MG, BID
     Route: 048
  2. HEXADROL TABLETS [Suspect]
     Dosage: 4 MG, QD
     Route: 048
  3. PREDNISONE [Suspect]

REACTIONS (3)
  - Zygomycosis [Recovered/Resolved]
  - Hepatectomy [Recovered/Resolved]
  - Diaphragmatic operation [Recovered/Resolved]
